FAERS Safety Report 24708043 (Version 2)
Quarter: 2025Q1

REPORT INFORMATION
  Report Type: Spontaneous
  Country: JP (occurrence: JP)
  Receive Date: 20241206
  Receipt Date: 20250113
  Transmission Date: 20250409
  Serious: Yes (Other)
  Sender: BIOMARIN
  Company Number: JP-BIOMARINAP-JP-2024-162368

PATIENT

DRUGS (1)
  1. VOXZOGO [Suspect]
     Active Substance: VOSORITIDE
     Indication: Osteochondrodysplasia
     Dosage: 0.28 MILLIGRAM, QD
     Route: 058
     Dates: start: 20240304

REACTIONS (2)
  - Deafness [Unknown]
  - Otitis media [Unknown]

NARRATIVE: CASE EVENT DATE: 20240724
